FAERS Safety Report 24442514 (Version 2)
Quarter: 2024Q4

REPORT INFORMATION
  Report Type: Spontaneous
  Country: US (occurrence: US)
  Receive Date: 20241016
  Receipt Date: 20241108
  Transmission Date: 20250115
  Serious: No
  Sender: BLUEPRINT MEDICINES
  Company Number: US-Blueprint Medicines Corporation-5038

PATIENT
  Age: 60 Year
  Sex: Female

DRUGS (1)
  1. AYVAKIT [Suspect]
     Active Substance: AVAPRITINIB
     Indication: Systemic mastocytosis
     Route: 065
     Dates: start: 20230930

REACTIONS (7)
  - Haemorrhage [Unknown]
  - Fatigue [Recovered/Resolved]
  - Swelling [Recovered/Resolved]
  - Contusion [Unknown]
  - Brain fog [Unknown]
  - Wound [Unknown]
  - Scratch [Unknown]
